FAERS Safety Report 9355755 (Version 4)
Quarter: 2014Q1

REPORT INFORMATION
  Report Type: Report from Study
  Country: CA (occurrence: CA)
  Receive Date: 20130619
  Receipt Date: 20140127
  Transmission Date: 20141002
  Serious: Yes (Other)
  Sender: FDA-Public Use
  Company Number: CA-ROCHE-1238197

PATIENT
  Sex: Male
  Weight: 68 kg

DRUGS (4)
  1. RITUXAN [Suspect]
     Indication: RHEUMATOID ARTHRITIS
     Route: 042
     Dates: start: 20120601
  2. RITUXAN [Suspect]
     Dosage: MOST RECENT DOSE ON 17/JUN/2013
     Route: 042
     Dates: start: 20121214
  3. PREDNISONE [Concomitant]
  4. HYDROMORPHONE [Concomitant]

REACTIONS (2)
  - Vomiting [Unknown]
  - Prostatomegaly [Unknown]
